FAERS Safety Report 11054874 (Version 1)
Quarter: 2015Q2

REPORT INFORMATION
  Report Type: Spontaneous
  Country: US (occurrence: US)
  Receive Date: 20150422
  Receipt Date: 20150422
  Transmission Date: 20150821
  Serious: Yes (Hospitalization)
  Sender: FDA-Public Use
  Company Number: US-BAYER-2015-138332

PATIENT
  Sex: Male

DRUGS (2)
  1. BAYER GENUINE ASPIRIN [Suspect]
     Active Substance: ASPIRIN
     Dosage: UNKNOWN
  2. LYRICA [Suspect]
     Active Substance: PREGABALIN
     Indication: GASTROINTESTINAL DISORDER
     Dosage: 100 MG, TID
     Route: 048
     Dates: start: 201405

REACTIONS (3)
  - Amnesia [Recovered/Resolved]
  - Pneumonia [Recovered/Resolved]
  - Renal failure [Recovered/Resolved]
